FAERS Safety Report 12976666 (Version 1)
Quarter: 2016Q4

REPORT INFORMATION
  Report Type: Report from Study
  Country: US (occurrence: US)
  Receive Date: 20161128
  Receipt Date: 20161128
  Transmission Date: 20170207
  Serious: Yes (Hospitalization, Other)
  Sender: FDA-Public Use
  Company Number: PHHO2014US019628

PATIENT
  Age: 57 Year
  Sex: Female
  Weight: 51.9 kg

DRUGS (9)
  1. NORMAL SALINE SOLUTION [Concomitant]
     Dosage: 1 L, SINGLE
     Route: 042
     Dates: start: 20140307, end: 20140307
  2. CEFTAZIDIME. [Concomitant]
     Active Substance: CEFTAZIDIME
     Indication: PROPHYLAXIS
     Dosage: 2 G, Q8H
     Route: 042
     Dates: start: 20140221, end: 20140224
  3. DABRAFENIB [Suspect]
     Active Substance: DABRAFENIB
     Dosage: 150 MG, UNK
     Route: 048
     Dates: start: 20140221, end: 20140221
  4. PANITUMUMAB [Suspect]
     Active Substance: PANITUMUMAB
     Indication: COLORECTAL CANCER
     Dosage: 6 MG/KG, CYCLIC
     Route: 042
     Dates: start: 20140211
  5. LOVENOX [Concomitant]
     Active Substance: ENOXAPARIN SODIUM
     Indication: THROMBOSIS PROPHYLAXIS
     Dosage: 40 MG, 1D
     Route: 058
     Dates: start: 20140222, end: 20140223
  6. NORMAL SALINE SOLUTION [Concomitant]
     Indication: PROPHYLAXIS AGAINST DEHYDRATION
     Dosage: 75 ML, CO
     Route: 042
     Dates: start: 20140221, end: 20140224
  7. TRAMETINIB [Suspect]
     Active Substance: TRAMETINIB
     Indication: COLORECTAL CANCER
     Dosage: 2 MG, QD
     Route: 048
     Dates: start: 20140211
  8. DABRAFENIB [Suspect]
     Active Substance: DABRAFENIB
     Indication: COLORECTAL CANCER
     Dosage: 150 MG, BID
     Route: 048
     Dates: start: 20140211, end: 20140220
  9. METRONIDAZOLE. [Concomitant]
     Active Substance: METRONIDAZOLE
     Indication: PROPHYLAXIS
     Dosage: 500 MG, SINGLE
     Route: 042
     Dates: start: 20140221, end: 20140221

REACTIONS (3)
  - Aspartate aminotransferase increased [Recovered/Resolved]
  - Alanine aminotransferase increased [Recovered/Resolved]
  - Pancreatitis [Recovered/Resolved]

NARRATIVE: CASE EVENT DATE: 20140221
